FAERS Safety Report 11851484 (Version 1)
Quarter: 2015Q4

REPORT INFORMATION
  Report Type: Spontaneous
  Country: US (occurrence: US)
  Receive Date: 20151218
  Receipt Date: 20151218
  Transmission Date: 20160305
  Serious: No
  Sender: FDA-Public Use
  Company Number: US-JNJFOC-20151120787

PATIENT
  Sex: Female
  Weight: 50.8 kg

DRUGS (2)
  1. WOMENS ROGAINE UNSCENTED [Suspect]
     Active Substance: MINOXIDIL
     Indication: HAIR GROWTH ABNORMAL
     Dosage: CAP FULL, FOR 15 YEARS ON AND OFF
     Route: 061
  2. WOMENS ROGAINE UNSCENTED [Suspect]
     Active Substance: MINOXIDIL
     Indication: MADAROSIS
     Dosage: CAP FULL, FOR 15 YEARS ON AND OFF
     Route: 061

REACTIONS (8)
  - Off label use [Unknown]
  - Product formulation issue [Unknown]
  - Alopecia [Unknown]
  - Product use issue [Unknown]
  - Inappropriate schedule of drug administration [Unknown]
  - Medication error [Unknown]
  - Irritability [Unknown]
  - Drug ineffective for unapproved indication [Unknown]
